FAERS Safety Report 5831580-7 (Version None)
Quarter: 2008Q3

REPORT INFORMATION
  Report Type: 
  Country: None (occurrence: None)
  Receive Date: 20080801
  Receipt Date: 20080724
  Transmission Date: 20090109
  Serious: Yes (Congenital Anomaly, Other)
  Sender: FDA-Public Use
  Company Number: US-ABBOTT-08P-163-0460417-00

PATIENT
  Sex: Female

DRUGS (8)
  1. KALETRA [Suspect]
     Indication: DRUG EXPOSURE DURING PREGNANCY
     Route: 064
  2. LAMIVUDINE + ZIDOVUDINE [Suspect]
     Indication: DRUG EXPOSURE DURING PREGNANCY
     Route: 064
  3. ZIDOVUDINE [Suspect]
     Indication: DRUG EXPOSURE DURING PREGNANCY
     Route: 064
  4. ZIDOVUDINE [Concomitant]
     Indication: DRUG USE FOR UNKNOWN INDICATION
     Dates: end: 20080410
  5. AMPICILLIN [Concomitant]
     Indication: DRUG USE FOR UNKNOWN INDICATION
  6. GENTAMICIN [Concomitant]
     Indication: DRUG USE FOR UNKNOWN INDICATION
  7. NEVIRAPINE [Concomitant]
     Indication: DRUG USE FOR UNKNOWN INDICATION
  8. BACTRIM [Concomitant]
     Indication: DRUG USE FOR UNKNOWN INDICATION
     Route: 050

REACTIONS (24)
  - ACUTE RESPIRATORY DISTRESS SYNDROME [None]
  - ALOPECIA [None]
  - ANAEMIA [None]
  - ASCITES [None]
  - ATRIAL SEPTAL DEFECT [None]
  - CEREBRAL VENTRICLE DILATATION [None]
  - CONGENITAL TOXOPLASMOSIS [None]
  - CSF TEST ABNORMAL [None]
  - DRUG EXPOSURE DURING PREGNANCY [None]
  - FEEDING DISORDER NEONATAL [None]
  - FOETAL HEART RATE DECREASED [None]
  - HEART DISEASE CONGENITAL [None]
  - HYDROCEPHALUS [None]
  - HYDROPS FOETALIS [None]
  - HYPOTENSION [None]
  - LEFT VENTRICULAR DYSFUNCTION [None]
  - LEFT VENTRICULAR HYPERTROPHY [None]
  - MELANOCYTIC NAEVUS [None]
  - PERICARDIAL EFFUSION [None]
  - PERSISTENT FOETAL CIRCULATION [None]
  - PLEURAL EFFUSION [None]
  - PREMATURE BABY [None]
  - RETINAL HAEMORRHAGE [None]
  - RIGHT VENTRICULAR HYPERTROPHY [None]
